FAERS Safety Report 6758238-4 (Version None)
Quarter: 2010Q2

REPORT INFORMATION
  Report Type: 
  Country: None (occurrence: None)
  Receive Date: 20100524
  Receipt Date: 20100412
  Transmission Date: 20101027
  Serious: No
  Sender: FDA-Public Use
  Company Number: 010045

PATIENT
  Sex: Male
  Weight: 68.8 kg

DRUGS (1)
  1. CIMZIA [Suspect]
     Indication: COLITIS ULCERATIVE
     Dosage: SUBCUTANEOUS
     Route: 058
     Dates: start: 20100324

REACTIONS (4)
  - MUSCLE SPASMS [None]
  - OFF LABEL USE [None]
  - PAIN IN EXTREMITY [None]
  - SKIN DISCOLOURATION [None]
